FAERS Safety Report 11377496 (Version 1)
Quarter: 2015Q3

REPORT INFORMATION
  Report Type: Spontaneous
  Country: US (occurrence: US)
  Receive Date: 20150811
  Receipt Date: 20150811
  Transmission Date: 20151125
  Serious: No
  Sender: FDA-Public Use
  Company Number: US-ELI_LILLY_AND_COMPANY-US200902002437

PATIENT
  Age: 42 Year
  Sex: Male

DRUGS (3)
  1. HUMULIN N [Suspect]
     Active Substance: INSULIN HUMAN
  2. HUMULIN R [Suspect]
     Active Substance: INSULIN HUMAN
  3. HUMULIN R [Suspect]
     Active Substance: INSULIN HUMAN
     Dosage: UNK, UNK

REACTIONS (1)
  - Intercepted drug dispensing error [Recovered/Resolved]

NARRATIVE: CASE EVENT DATE: 200902
